FAERS Safety Report 5295770-7 (Version None)
Quarter: 2007Q2

REPORT INFORMATION
  Report Type: 
  Country: None (occurrence: None)
  Receive Date: 20070413
  Receipt Date: 20070402
  Transmission Date: 20071010
  Serious: Yes (Hospitalization)
  Sender: FDA-Public Use
  Company Number: PHBS2007JP03541

PATIENT
  Age: 32 Year
  Sex: Male

DRUGS (2)
  1. TEGRETOL [Suspect]
     Indication: HEADACHE
     Dosage: 200 MG/DAY
     Route: 048
  2. TEGRETOL [Suspect]
     Dosage: 600 MG/DAY
     Route: 048

REACTIONS (3)
  - BRAIN DAMAGE [None]
  - CRANIAL NERVE DISORDER [None]
  - HEADACHE [None]
